FAERS Safety Report 9110173 (Version 2)
Quarter: 2013Q2

REPORT INFORMATION
  Report Type: Report from Study
  Country: US (occurrence: US)
  Receive Date: 20130222
  Receipt Date: 20130513
  Transmission Date: 20140414
  Serious: Yes (Other)
  Sender: FDA-Public Use
  Company Number: US-ROCHE-1193338

PATIENT
  Sex: Female

DRUGS (2)
  1. BEVACIZUMAB [Suspect]
     Indication: DIABETIC RETINAL OEDEMA
     Dosage: 1 INJECTION ONCE OR TWICE EVERY MONTH IN BETWEEN LASER TREATMENT THERAPY
     Route: 065
     Dates: start: 201201
  2. RADIATION [Concomitant]
     Route: 065
     Dates: start: 201301, end: 20130215

REACTIONS (5)
  - Breast cancer [Unknown]
  - Fatigue [Unknown]
  - Periarthritis [Recovering/Resolving]
  - Eye disorder [Unknown]
  - Radiation skin injury [Recovering/Resolving]
